FAERS Safety Report 14251369 (Version 10)
Quarter: 2018Q4

REPORT INFORMATION
  Report Type: Spontaneous
  Country: DE (occurrence: DE)
  Receive Date: 20171205
  Receipt Date: 20181228
  Transmission Date: 20190204
  Serious: Yes (Other)
  Sender: FDA-Public Use
  Company Number: PHHY2017DE153007

PATIENT
  Age: 72 Year
  Sex: Male

DRUGS (7)
  1. TASIGNA [Interacting]
     Active Substance: NILOTINIB
     Dosage: 400 MG, (200-0-200 MG)
     Route: 048
     Dates: start: 201605
  2. MOTILIUM [Suspect]
     Active Substance: DOMPERIDONE
     Indication: PRODUCT USED FOR UNKNOWN INDICATION
     Dosage: 10 MG, UNK
     Route: 065
  3. STROPHANTIN [Concomitant]
     Indication: PROPHYLAXIS
     Dosage: UNK
     Route: 065
     Dates: start: 2017, end: 2018
  4. KLACID-MR [Suspect]
     Active Substance: CLARITHROMYCIN
     Indication: HELICOBACTER INFECTION
     Dosage: 500 MG, UNK
     Route: 065
  5. TURMERIC [Suspect]
     Active Substance: HERBALS\TURMERIC
     Indication: PRODUCT USED FOR UNKNOWN INDICATION
     Dosage: 1 TSP, QD
     Route: 065
  6. TASIGNA [Suspect]
     Active Substance: NILOTINIB
     Indication: CHRONIC MYELOID LEUKAEMIA
     Dosage: 600 MG, QD (2X200 MG IN THE MORNING, 200 MG IN THE EVENING)
     Route: 048
     Dates: start: 201402
  7. PANTOPRAZOLE [Suspect]
     Active Substance: PANTOPRAZOLE
     Indication: PRODUCT USED FOR UNKNOWN INDICATION
     Dosage: UNK
     Route: 065

REACTIONS (11)
  - Gastritis [Unknown]
  - Dyspepsia [Unknown]
  - Abdominal pain upper [Unknown]
  - Musculoskeletal chest pain [Unknown]
  - Helicobacter infection [Unknown]
  - Sleep disorder [Unknown]
  - Arthralgia [Unknown]
  - Burning sensation [Unknown]
  - Gastric ulcer [Unknown]
  - Gait disturbance [Unknown]
  - Drug interaction [Unknown]

NARRATIVE: CASE EVENT DATE: 2015
